FAERS Safety Report 6565945-5 (Version None)
Quarter: 2010Q1

REPORT INFORMATION
  Report Type: 
  Country: None (occurrence: None)
  Receive Date: 20100129
  Receipt Date: 20100129
  Transmission Date: 20100710
  Serious: No
  Sender: FDA-Public Use
  Company Number: None

PATIENT
  Age: 74 Year
  Sex: Female
  Weight: 88.4514 kg

DRUGS (4)
  1. SINGULAIR [Suspect]
     Indication: GASTROOESOPHAGEAL REFLUX DISEASE
     Dosage: 1 TABLET DAILY PO
     Route: 048
     Dates: start: 20090701, end: 20100115
  2. SINGULAIR [Suspect]
     Indication: MULTIPLE ALLERGIES
     Dosage: 1 TABLET DAILY PO
     Route: 048
     Dates: start: 20090701, end: 20100115
  3. SINGULAIR [Suspect]
     Indication: SLEEP APNOEA SYNDROME
     Dosage: 1 TABLET DAILY PO
     Route: 048
     Dates: start: 20090701, end: 20100115
  4. SINGULAIR [Suspect]
     Indication: SLEEP DISORDER
     Dosage: 1 TABLET DAILY PO
     Route: 048
     Dates: start: 20090701, end: 20100115

REACTIONS (2)
  - ABNORMAL DREAMS [None]
  - INSOMNIA [None]
